FAERS Safety Report 7409435-6 (Version None)
Quarter: 2011Q2

REPORT INFORMATION
  Report Type: 
  Country: None (occurrence: None)
  Receive Date: 20110412
  Receipt Date: 20110404
  Transmission Date: 20111010
  Serious: Yes (Disabling)
  Sender: FDA-Public Use
  Company Number: US-US-EMD SERONO, INC.-7050289

PATIENT
  Sex: Female

DRUGS (3)
  1. CITALOPRAM [Concomitant]
     Indication: DEPRESSION
     Dates: start: 20090401
  2. AMPYRA [Concomitant]
     Indication: GAIT DISTURBANCE
  3. REBIF [Suspect]
     Indication: MULTIPLE SCLEROSIS
     Route: 058
     Dates: start: 20081206

REACTIONS (3)
  - HYPERSENSITIVITY [None]
  - CELLULITIS ORBITAL [None]
  - BLINDNESS UNILATERAL [None]
